FAERS Safety Report 17736079 (Version 1)
Quarter: 2020Q2

REPORT INFORMATION
  Report Type: Spontaneous
  Country: US (occurrence: US)
  Receive Date: 20200501
  Receipt Date: 20200501
  Transmission Date: 20200714
  Serious: No
  Sender: FDA-Public Use
  Company Number: US-RADIUS HEALTH INC.-2020US000514

PATIENT
  Age: 69 Year
  Sex: Female

DRUGS (1)
  1. TYMLOS [Suspect]
     Active Substance: ABALOPARATIDE
     Indication: OSTEOPOROSIS POSTMENOPAUSAL
     Dosage: 80 MCG, QD
     Route: 058
     Dates: start: 20191024, end: 20200206

REACTIONS (13)
  - Nasopharyngitis [Not Recovered/Not Resolved]
  - Skin wrinkling [Recovering/Resolving]
  - Tremor [Not Recovered/Not Resolved]
  - Hot flush [Recovering/Resolving]
  - Yellow skin [Recovering/Resolving]
  - Nausea [Recovered/Resolved]
  - Vasodilatation [Recovering/Resolving]
  - Erythema [Recovering/Resolving]
  - Dysphonia [Recovering/Resolving]
  - Skin discolouration [Recovering/Resolving]
  - Fatigue [Not Recovered/Not Resolved]
  - Diarrhoea [Recovering/Resolving]
  - Muscle spasms [Recovering/Resolving]

NARRATIVE: CASE EVENT DATE: 20200119
